FAERS Safety Report 13107495 (Version 2)
Quarter: 2017Q1

REPORT INFORMATION
  Report Type: Spontaneous
  Country: US (occurrence: US)
  Receive Date: 20170112
  Receipt Date: 20170309
  Transmission Date: 20170428
  Serious: Yes (Other)
  Sender: FDA-Public Use
  Company Number: PHEH2017US000934

PATIENT
  Age: 25 Year
  Sex: Female

DRUGS (1)
  1. GILENYA [Suspect]
     Active Substance: FINGOLIMOD HYDROCHLORIDE
     Indication: MULTIPLE SCLEROSIS
     Dosage: 0.5 MG, QD
     Route: 048
     Dates: start: 20161005, end: 20161005

REACTIONS (2)
  - Sinus rhythm [Unknown]
  - Atrioventricular block second degree [Recovered/Resolved]

NARRATIVE: CASE EVENT DATE: 20161005
